FAERS Safety Report 9484091 (Version 2)
Quarter: 2013Q3

REPORT INFORMATION
  Report Type: Spontaneous
  Country: CA (occurrence: CA)
  Receive Date: 20130828
  Receipt Date: 20130828
  Transmission Date: 20140515
  Serious: Yes (Other)
  Sender: FDA-Public Use
  Company Number: CA-AMGEN-KDL353057

PATIENT
  Age: 57 Year
  Sex: Female
  Weight: 103.1 kg

DRUGS (4)
  1. ENBREL [Suspect]
     Indication: PSORIATIC ARTHROPATHY
     Dosage: UNK UNK, QWK
     Route: 065
     Dates: start: 20090420, end: 20090610
  2. PAROXETINE [Concomitant]
     Dosage: UNK UNK, UNK
  3. GOLD [Concomitant]
  4. PREDNISONE [Concomitant]

REACTIONS (10)
  - Swelling face [Unknown]
  - Otorrhoea [Unknown]
  - Erythema [Unknown]
  - Hot flush [Unknown]
  - Lymphadenopathy [Unknown]
  - Psoriatic arthropathy [Unknown]
  - Blood creatinine increased [Unknown]
  - Blood cholesterol increased [Unknown]
  - Pain [Unknown]
  - Bronchitis [Unknown]
